FAERS Safety Report 19181960 (Version 2)
Quarter: 2021Q2

REPORT INFORMATION
  Report Type: Report from Study
  Country: US (occurrence: US)
  Receive Date: 20210426
  Receipt Date: 20210506
  Transmission Date: 20210717
  Serious: Yes (Other)
  Sender: FDA-Public Use
  Company Number: US-SUNOVION-2021SUN001438

PATIENT
  Sex: Male

DRUGS (1)
  1. KYNMOBI [Suspect]
     Active Substance: APOMORPHINE HYDROCHLORIDE
     Dosage: 10 MG
     Route: 060
     Dates: start: 20210417

REACTIONS (14)
  - Presyncope [Unknown]
  - Somnolence [Unknown]
  - Heart rate decreased [Unknown]
  - Abdominal pain upper [Unknown]
  - Nausea [Unknown]
  - Feeling abnormal [Unknown]
  - Blood pressure decreased [Unknown]
  - Hyperhidrosis [Unknown]
  - Depressed level of consciousness [Unknown]
  - Dyskinesia [Unknown]
  - Aphasia [Unknown]
  - Yawning [Unknown]
  - Lethargy [Unknown]
  - Pallor [Unknown]

NARRATIVE: CASE EVENT DATE: 20210417
